FAERS Safety Report 6141109-4 (Version None)
Quarter: 2009Q2

REPORT INFORMATION
  Report Type: 
  Country: None (occurrence: None)
  Receive Date: 20090402
  Receipt Date: 20090330
  Transmission Date: 20091009
  Serious: Yes (Death, Hospitalization)
  Sender: FDA-Public Use
  Company Number: PHHY2009CA02349

PATIENT
  Sex: Male

DRUGS (4)
  1. CLOZARIL [Suspect]
     Indication: SCHIZOPHRENIA
     Dosage: 125 MG
     Route: 048
     Dates: start: 20080813
  2. CLOZARIL [Suspect]
     Dosage: 150 MG
     Route: 048
     Dates: end: 20090218
  3. PANTOLOC ^BYK GULDEN^ [Concomitant]
     Dosage: UNK
     Dates: start: 20080801
  4. CLONAZEPAM [Concomitant]
     Dosage: UNK
     Dates: start: 20080801

REACTIONS (8)
  - CONDITION AGGRAVATED [None]
  - HEPATIC ENCEPHALOPATHY [None]
  - HEPATIC FAILURE [None]
  - HEPATIC FUNCTION ABNORMAL [None]
  - HEPATOTOXICITY [None]
  - JAUNDICE [None]
  - LIVER FUNCTION TEST ABNORMAL [None]
  - LIVER TRANSPLANT [None]
